FAERS Safety Report 7710970-1 (Version None)
Quarter: 2011Q3

REPORT INFORMATION
  Report Type: 
  Country: None (occurrence: None)
  Receive Date: 20110825
  Receipt Date: 20110816
  Transmission Date: 20111222
  Serious: Yes (Other)
  Sender: FDA-Public Use
  Company Number: US-ASTRAZENECA-2011SE49243

PATIENT
  Age: 48 Year
  Sex: Female

DRUGS (2)
  1. ARIMIDEX [Concomitant]
  2. NEXIUM [Suspect]
     Route: 048

REACTIONS (1)
  - BREAST CANCER FEMALE [None]
